FAERS Safety Report 9433353 (Version 3)
Quarter: 2013Q3

REPORT INFORMATION
  Report Type: Report from Study
  Country: US (occurrence: US)
  Receive Date: 20130731
  Receipt Date: 20130828
  Transmission Date: 20140515
  Serious: Yes (Hospitalization)
  Sender: FDA-Public Use
  Company Number: US-ACTELION-A-NJ2012-73267

PATIENT
  Age: 68 Year
  Sex: Female

DRUGS (3)
  1. VENTAVIS [Suspect]
     Indication: PULMONARY ARTERIAL HYPERTENSION
     Dosage: 20 ?G/ML,
     Route: 055
  2. VENTAVIS [Suspect]
     Dosage: 5 MCG, 4-5XDAILY
     Route: 055
     Dates: start: 20120606
  3. SILDENAFIL [Concomitant]

REACTIONS (4)
  - Dehydration [Unknown]
  - Drug dose omission [Unknown]
  - Malaise [Unknown]
  - Diarrhoea [Unknown]
